FAERS Safety Report 15020025 (Version 1)
Quarter: 2018Q2

REPORT INFORMATION
  Report Type: Spontaneous
  Country: FR (occurrence: FR)
  Receive Date: 20180618
  Receipt Date: 20180618
  Transmission Date: 20180711
  Serious: Yes (Life-Threatening, Hospitalization)
  Sender: FDA-Public Use
  Company Number: FR-TEVA-2018-FR-907371

PATIENT
  Age: 40 Year
  Sex: Female
  Weight: 97 kg

DRUGS (18)
  1. ESIDREX [Suspect]
     Active Substance: HYDROCHLOROTHIAZIDE
     Indication: SUICIDE ATTEMPT
     Dosage: NON-DESIGNED DOSAGE
     Route: 048
     Dates: start: 20180223, end: 20180223
  2. FENOFIBRATE. [Concomitant]
     Active Substance: FENOFIBRATE
     Dosage: 200 MILLIGRAM DAILY;
     Route: 048
  3. SERESTA 50 MG, COMPRIM? S?CABLE [Concomitant]
     Active Substance: OXAZEPAM
     Dosage: 1.5 DOSAGE FORMS DAILY;
     Route: 048
  4. PRIMPERAN [Concomitant]
     Active Substance: METOCLOPRAMIDE HYDROCHLORIDE
     Route: 048
  5. PANTOPRAZOLE [Concomitant]
     Active Substance: PANTOPRAZOLE
     Dosage: 20 MILLIGRAM DAILY;
     Route: 048
  6. LOPRAZOLAM [Concomitant]
     Active Substance: LOPRAZOLAM
     Dosage: 1 DOSAGE FORMS DAILY; DOSAGE NOT SPECIFIED
     Route: 048
  7. ENALAPRIL (MALEATE D^) [Suspect]
     Active Substance: ENALAPRIL MALEATE
     Indication: SUICIDE ATTEMPT
     Dosage: DOSAGE NOT KNOWN
     Route: 048
     Dates: start: 20180223, end: 20180223
  8. DULAGLUTIDE ((MAMMIFERE/HAMSTER/CELLULES CHO)) [Concomitant]
     Route: 047
  9. AMLOR 5 MG, G?LULE [Suspect]
     Active Substance: AMLODIPINE BESYLATE
     Indication: SUICIDE ATTEMPT
     Dosage: NON-DESIGNED DOSAGE
     Route: 048
     Dates: start: 20180223, end: 20180223
  10. METOPROLOL (TARTRATE DE) [Suspect]
     Active Substance: METOPROLOL TARTRATE
     Indication: SUICIDE ATTEMPT
     Dosage: DOSAGE NOT KNOWN
     Route: 048
     Dates: start: 20180223, end: 20180223
  11. HYDROCHLOROTHIAZIDE. [Concomitant]
     Active Substance: HYDROCHLOROTHIAZIDE
     Dosage: 25 MILLIGRAM DAILY;
     Route: 048
  12. KARDEGIC [Concomitant]
     Active Substance: ASPIRIN DL-LYSINE
     Dosage: 1 DOSAGE FORMS DAILY;
     Route: 048
  13. MILNACIPRAN [Concomitant]
     Active Substance: MILNACIPRAN
     Dosage: 2 DOSAGE FORMS DAILY; DOSAGE NOT SPECIFIED
     Route: 048
  14. METFORMINE [Concomitant]
     Active Substance: METFORMIN HYDROCHLORIDE
     Dosage: 200 MILLIGRAM DAILY;
     Route: 048
  15. ALIMEMAZINE [Concomitant]
     Active Substance: TRIMEPRAZINE
     Dosage: 50 GTT DAILY;
     Route: 048
  16. PARACETAMOL [Concomitant]
     Active Substance: ACETAMINOPHEN
     Dosage: DOSAGE NOT KNOWN
     Route: 048
  17. IBUPROFENE [Concomitant]
     Active Substance: IBUPROFEN
     Route: 005
  18. LANTUS [Concomitant]
     Active Substance: INSULIN GLARGINE
     Dosage: 30 IU (INTERNATIONAL UNIT) DAILY;
     Route: 058

REACTIONS (5)
  - Coma [Recovered/Resolved]
  - Atrioventricular block first degree [Recovered/Resolved]
  - Hypoxia [Recovered/Resolved]
  - Miosis [Recovered/Resolved]
  - Hypovolaemic shock [Recovered/Resolved]

NARRATIVE: CASE EVENT DATE: 20180223
